FAERS Safety Report 9180896 (Version 1)
Quarter: 2013Q1

REPORT INFORMATION
  Report Type: Spontaneous
  Country: BR (occurrence: BR)
  Receive Date: 20130322
  Receipt Date: 20130322
  Transmission Date: 20140127
  Serious: Yes (Other)
  Sender: FDA-Public Use
  Company Number: BR-BAYER-2013-032301

PATIENT
  Age: 26 Year
  Sex: Female
  Weight: 56 kg

DRUGS (3)
  1. YAZ [Suspect]
     Indication: CONTRACEPTION
     Dosage: 1 DF, QD
     Route: 048
     Dates: start: 2009, end: 20121005
  2. YAZ [Suspect]
     Indication: CONTRACEPTION
     Dosage: 1 DF, QD
     Route: 048
     Dates: start: 20121129, end: 201303
  3. QLAIRA [Suspect]
     Indication: CONTRACEPTION
     Dosage: UNK
     Route: 048
     Dates: start: 201303

REACTIONS (6)
  - Pregnancy on oral contraceptive [Recovered/Resolved]
  - Inappropriate schedule of drug administration [None]
  - Abortion spontaneous [Recovered/Resolved]
  - Metrorrhagia [Recovered/Resolved]
  - Drug ineffective [None]
  - Drug dose omission [None]
